FAERS Safety Report 9483859 (Version 1)
Quarter: 2013Q3

REPORT INFORMATION
  Report Type: Spontaneous
  Country: US (occurrence: US)
  Receive Date: 20130828
  Receipt Date: 20130828
  Transmission Date: 20140515
  Serious: Yes (Other)
  Sender: FDA-Public Use
  Company Number: US-ABBOTT-13P-163-1136762-00

PATIENT
  Sex: Male

DRUGS (2)
  1. HUMIRA [Suspect]
     Indication: COLITIS ULCERATIVE
  2. CORTICOSTEROIDS [Concomitant]
     Indication: COLITIS ULCERATIVE

REACTIONS (3)
  - Cardiomyopathy [Unknown]
  - Cardiac failure congestive [Unknown]
  - Colitis ulcerative [Unknown]
